FAERS Safety Report 9748508 (Version 1)
Quarter: 2013Q4

REPORT INFORMATION
  Report Type: Spontaneous
  Country: US (occurrence: None)
  Receive Date: 20131211
  Receipt Date: 20131211
  Transmission Date: 20140711
  Serious: Yes (Death, Hospitalization)
  Sender: FDA-Public Use
  Company Number: None

PATIENT
  Age: 59 Year
  Sex: Male
  Weight: 118 kg

DRUGS (1)
  1. TARCEVA [Suspect]
     Dates: start: 20131008, end: 20131107

REACTIONS (5)
  - Pyrexia [None]
  - Respiratory disorder [None]
  - General physical health deterioration [None]
  - Dyspnoea [None]
  - Malignant neoplasm progression [None]
